FAERS Safety Report 5875263-6 (Version None)
Quarter: 2008Q3

REPORT INFORMATION
  Report Type: 
  Country: None (occurrence: None)
  Receive Date: 20080904
  Receipt Date: 20080825
  Transmission Date: 20090109
  Serious: Yes (Hospitalization)
  Sender: FDA-Public Use
  Company Number: 2005BI007482

PATIENT
  Sex: Female

DRUGS (1)
  1. AVONEX [Suspect]
     Indication: MULTIPLE SCLEROSIS
     Dosage: QW; IM, 30 UG; QW; IM
     Route: 030
     Dates: start: 20030621

REACTIONS (4)
  - BREAST CANCER FEMALE [None]
  - FALL [None]
  - N-TELOPEPTIDE URINE INCREASED [None]
  - RIB FRACTURE [None]
